FAERS Safety Report 4922469-6 (Version None)
Quarter: 2006Q1

REPORT INFORMATION
  Report Type: 
  Country: None (occurrence: None)
  Receive Date: 20060224
  Receipt Date: 20051004
  Transmission Date: 20060701
  Serious: Yes (Hospitalization)
  Sender: FDA-Public Use
  Company Number: US-MERCK-0510USA03872

PATIENT
  Age: 77 Year
  Sex: Female

DRUGS (9)
  1. VIOXX [Suspect]
     Indication: OSTEOARTHRITIS
     Route: 048
     Dates: start: 19990622, end: 20000616
  2. VIOXX [Suspect]
     Route: 048
     Dates: start: 20000616, end: 20031214
  3. VIOXX [Suspect]
     Indication: ARTHRITIS
     Route: 048
     Dates: start: 19990622, end: 20000616
  4. VIOXX [Suspect]
     Route: 048
     Dates: start: 20000616, end: 20031214
  5. NORVASC [Concomitant]
     Indication: CARDIAC DISORDER
     Route: 065
     Dates: end: 20031212
  6. LASIX [Concomitant]
     Indication: OEDEMA PERIPHERAL
     Route: 065
     Dates: start: 19850101
  7. POTASSIUM (UNSPECIFIED) [Concomitant]
     Route: 065
  8. ASPIRIN [Concomitant]
     Indication: PROPHYLAXIS
     Route: 065
     Dates: start: 20000101
  9. NITROGLYCERIN [Concomitant]
     Indication: HYPERTENSION
     Route: 065

REACTIONS (24)
  - ANGINA UNSTABLE [None]
  - ASTHENIA [None]
  - ATRIAL FIBRILLATION [None]
  - BLOOD CHOLESTEROL INCREASED [None]
  - CARDIAC FAILURE CONGESTIVE [None]
  - CARDIOMEGALY [None]
  - CHEST DISCOMFORT [None]
  - CHEST PAIN [None]
  - CHRONIC OBSTRUCTIVE PULMONARY DISEASE [None]
  - DILATATION ATRIAL [None]
  - DRUG TOXICITY [None]
  - DYSPNOEA [None]
  - FATIGUE [None]
  - GENERALISED OEDEMA [None]
  - HYPERTENSION [None]
  - HYPERTENSIVE HEART DISEASE [None]
  - MITRAL VALVE INCOMPETENCE [None]
  - MITRAL VALVE STENOSIS [None]
  - MYOCARDIAL INFARCTION [None]
  - PRODUCTIVE COUGH [None]
  - SINUS ARRHYTHMIA [None]
  - SLEEP APNOEA SYNDROME [None]
  - TRICUSPID VALVE DISEASE [None]
  - TRICUSPID VALVE INCOMPETENCE [None]
